FAERS Safety Report 10254826 (Version 1)
Quarter: 2014Q2

REPORT INFORMATION
  Report Type: Spontaneous
  Country: US (occurrence: None)
  Receive Date: 20140620
  Receipt Date: 20140620
  Transmission Date: 20141212
  Serious: Yes (Hospitalization)
  Sender: FDA-Public Use
  Company Number: None

PATIENT
  Age: 74 Year
  Sex: Female
  Weight: 67.13 kg

DRUGS (2)
  1. PREPOPIK [Suspect]
     Indication: COLONOSCOPY
     Route: 048
     Dates: start: 20140422, end: 20140423
  2. PREPOPIK [Suspect]
     Indication: BOWEL PREPARATION
     Route: 048
     Dates: start: 20140422, end: 20140423

REACTIONS (5)
  - Loss of consciousness [None]
  - Confusional state [None]
  - Dehydration [None]
  - Fatigue [None]
  - Asthenia [None]
